FAERS Safety Report 14472063 (Version 4)
Quarter: 2018Q2

REPORT INFORMATION
  Report Type: Spontaneous
  Country: US (occurrence: US)
  Receive Date: 20180131
  Receipt Date: 20180523
  Transmission Date: 20180711
  Serious: No
  Sender: FDA-Public Use
  Company Number: US-009507513-1801USA006066

PATIENT
  Sex: Female
  Weight: 55.78 kg

DRUGS (2)
  1. NEXPLANON [Suspect]
     Active Substance: ETONOGESTREL
     Indication: CONTRACEPTION
     Dosage: 68 MG, ONE ROD PER 3 YEARS
     Route: 059
     Dates: start: 20171013
  2. NEXPLANON [Suspect]
     Active Substance: ETONOGESTREL
     Dosage: 68 MG, ONE ROD PER 3 YEARS
     Route: 059
     Dates: start: 20180302

REACTIONS (3)
  - No adverse event [Unknown]
  - Product quality issue [Unknown]
  - Device kink [Recovered/Resolved]

NARRATIVE: CASE EVENT DATE: 2018
